FAERS Safety Report 8993410 (Version 3)
Quarter: 2013Q2

REPORT INFORMATION
  Report Type: Spontaneous
  Country: PL (occurrence: PL)
  Receive Date: 20130102
  Receipt Date: 20130429
  Transmission Date: 20140414
  Serious: Yes (Death)
  Sender: FDA-Public Use
  Company Number: PL-CELGENEUS-129-50794-12122372

PATIENT
  Sex: Male

DRUGS (1)
  1. VIDAZA [Suspect]
     Indication: REFRACTORY CYTOPENIA WITH MULTILINEAGE DYSPLASIA
     Dosage: 143 MILLIGRAM
     Route: 058
     Dates: start: 20120726, end: 20120912

REACTIONS (2)
  - Cardiac arrest [Fatal]
  - Mantle cell lymphoma [Fatal]
